FAERS Safety Report 18284036 (Version 2)
Quarter: 2020Q3

REPORT INFORMATION
  Report Type: Spontaneous
  Country: US (occurrence: US)
  Receive Date: 20200918
  Receipt Date: 20200925
  Transmission Date: 20201103
  Serious: Yes (Hospitalization, Other)
  Sender: FDA-Public Use
  Company Number: US-HIKMA PHARMACEUTICALS USA INC.-US-H14001-20-04302

PATIENT
  Age: 37 Year
  Sex: Male

DRUGS (11)
  1. VINCRISTINE [Suspect]
     Active Substance: VINCRISTINE
     Dosage: UNKNOWN
     Route: 042
  2. ETOPOSIDE. [Suspect]
     Active Substance: ETOPOSIDE
     Indication: ADULT T-CELL LYMPHOMA/LEUKAEMIA
     Dosage: UNKNOWN
     Route: 042
  3. PREDNISONE. [Suspect]
     Active Substance: PREDNISONE
     Indication: ADULT T-CELL LYMPHOMA/LEUKAEMIA
     Dosage: UNKNOWN
     Route: 048
  4. CYCLOPHOSPHAMIDE. [Suspect]
     Active Substance: CYCLOPHOSPHAMIDE
     Dosage: UNKNOWN
     Route: 042
  5. PREDNISONE. [Suspect]
     Active Substance: PREDNISONE
     Dosage: UNKNOWN
     Route: 048
  6. ETOPOSIDE. [Suspect]
     Active Substance: ETOPOSIDE
     Dosage: UNKNOWN
     Route: 042
  7. CYCLOPHOSPHAMIDE. [Suspect]
     Active Substance: CYCLOPHOSPHAMIDE
     Indication: ADULT T-CELL LYMPHOMA/LEUKAEMIA
     Dosage: UNKNOWN
     Route: 042
  8. VINCRISTINE [Suspect]
     Active Substance: VINCRISTINE
     Indication: ADULT T-CELL LYMPHOMA/LEUKAEMIA
     Dosage: UNKNOWN
     Route: 042
  9. RALTEGRAVIR. [Suspect]
     Active Substance: RALTEGRAVIR
     Indication: ADULT T-CELL LYMPHOMA/LEUKAEMIA
     Dosage: UNKNOWN
     Route: 065
  10. DOXORUBICIN [Suspect]
     Active Substance: DOXORUBICIN
     Indication: ADULT T-CELL LYMPHOMA/LEUKAEMIA
     Dosage: UNKNOWN
     Route: 042
  11. DOXORUBICIN [Suspect]
     Active Substance: DOXORUBICIN
     Dosage: UNKNOWN
     Route: 042

REACTIONS (5)
  - Cardiotoxicity [Recovering/Resolving]
  - Cardiomyopathy acute [Recovering/Resolving]
  - Mitral valve incompetence [Recovering/Resolving]
  - Electrocardiogram T wave inversion [Recovering/Resolving]
  - Tumour lysis syndrome [Recovered/Resolved]
